FAERS Safety Report 25652631 (Version 1)
Quarter: 2025Q3

REPORT INFORMATION
  Report Type: Spontaneous
  Country: US (occurrence: US)
  Receive Date: 20250807
  Receipt Date: 20250807
  Transmission Date: 20251021
  Serious: No
  Sender: GLAXOSMITHKLINE
  Company Number: US-GSK-US2025AMR088038

PATIENT

DRUGS (4)
  1. NUCALA [Suspect]
     Active Substance: MEPOLIZUMAB
     Indication: Hyperlipidaemia
  2. NUCALA [Suspect]
     Active Substance: MEPOLIZUMAB
     Indication: Transient ischaemic attack
  3. NUCALA [Suspect]
     Active Substance: MEPOLIZUMAB
     Indication: Cerebral infarction
  4. NUCALA [Suspect]
     Active Substance: MEPOLIZUMAB
     Indication: Generalised anxiety disorder

REACTIONS (1)
  - Off label use [Unknown]
